FAERS Safety Report 4950691-1 (Version None)
Quarter: 2006Q1

REPORT INFORMATION
  Report Type: 
  Country: None (occurrence: None)
  Receive Date: 20060321
  Receipt Date: 20060321
  Transmission Date: 20060701
  Serious: Yes (Hospitalization, Disabling, Other)
  Sender: FDA-Public Use
  Company Number: None

PATIENT
  Age: 60 Year
  Sex: Male
  Weight: 95.2554 kg

DRUGS (2)
  1. LEVAQUIN [Suspect]
     Indication: BRONCHITIS
     Dosage: 1  DAILY  PO
     Route: 048
     Dates: start: 20060228, end: 20060310
  2. LEVAQUIN [Suspect]
     Indication: SINUSITIS
     Dosage: 1  DAILY  PO
     Route: 048
     Dates: start: 20060228, end: 20060310

REACTIONS (4)
  - DIFFICULTY IN WALKING [None]
  - PAIN IN EXTREMITY [None]
  - TENDON DISORDER [None]
  - TENDON RUPTURE [None]
